FAERS Safety Report 9371562 (Version 2)
Quarter: 2013Q3

REPORT INFORMATION
  Report Type: Spontaneous
  Country: TR (occurrence: TR)
  Receive Date: 20130627
  Receipt Date: 20130704
  Transmission Date: 20140515
  Serious: Yes (Other)
  Sender: FDA-Public Use
  Company Number: TR-RANBAXY-2013RR-70593

PATIENT
  Age: 16 Year
  Sex: Female

DRUGS (5)
  1. FLUOXETINE [Suspect]
     Indication: CONVERSION DISORDER
     Dosage: 20 MG/DAY
     Route: 065
  2. LEVETIRACETAM [Concomitant]
     Indication: EPILEPSY
     Dosage: 1000 MG/DAY
     Route: 065
  3. SERTRALINE [Concomitant]
     Indication: CONVERSION DISORDER
     Dosage: 50 MG/DAY
     Route: 065
  4. SERTRALINE [Concomitant]
     Indication: CONVERSION DISORDER
     Dosage: 100 MG/DAY
  5. HYDROXYZINE [Concomitant]
     Indication: CONVERSION DISORDER
     Dosage: 25 MG/DAY
     Route: 065

REACTIONS (1)
  - Opisthotonus [Recovered/Resolved]
